FAERS Safety Report 14665771 (Version 1)
Quarter: 2018Q1

REPORT INFORMATION
  Report Type: Spontaneous
  Country: GB (occurrence: GB)
  Receive Date: 20180321
  Receipt Date: 20180321
  Transmission Date: 20180509
  Serious: Yes (Other)
  Sender: FDA-Public Use
  Company Number: GB-PFIZER INC-2018111666

PATIENT
  Age: 17 Year
  Sex: Female

DRUGS (4)
  1. XANAX [Suspect]
     Active Substance: ALPRAZOLAM
     Dosage: 1.5MG TO 2MG A NIGHT
  2. XANAX [Suspect]
     Active Substance: ALPRAZOLAM
     Dosage: 4 MG, DAILY AT NIGHT
  3. XANAX [Suspect]
     Active Substance: ALPRAZOLAM
     Dosage: 5 MG, ONE NIGHT
  4. ALCOHOL. [Concomitant]
     Active Substance: ALCOHOL

REACTIONS (13)
  - Abnormal behaviour [Unknown]
  - Feeling abnormal [Unknown]
  - Withdrawal syndrome [Unknown]
  - Influenza like illness [Unknown]
  - Amnesia [Unknown]
  - Drug abuse [Unknown]
  - Disturbance in attention [Unknown]
  - Clumsiness [Unknown]
  - Headache [Unknown]
  - Restlessness [Unknown]
  - Nausea [Unknown]
  - Bone pain [Unknown]
  - Speech disorder [Unknown]
